FAERS Safety Report 4834822-X (Version None)
Quarter: 2005Q4

REPORT INFORMATION
  Report Type: 
  Country: None (occurrence: None)
  Receive Date: 20051115
  Receipt Date: 20051104
  Transmission Date: 20060501
  Serious: Yes (Hospitalization)
  Sender: FDA-Public Use
  Company Number: KII-2005-0019452

PATIENT
  Age: 2 Year
  Sex: Female

DRUGS (11)
  1. OXYCONTIN [Suspect]
     Indication: ACCIDENTAL EXPOSURE
     Dosage: SEE IMAGE, ORAL
     Route: 048
     Dates: start: 20050920
  2. ACETAMINOPHEN WITH PROPOXYPHENE () [Suspect]
     Indication: ACCIDENTAL EXPOSURE
     Dosage: SEE IMAGE, ORAL
     Route: 048
     Dates: start: 20050920
  3. BENZODIAZEPINE DERIVATIVES () [Suspect]
     Indication: ACCIDENTAL EXPOSURE
     Dosage: SEE IMAGE, ORAL
     Route: 049
     Dates: start: 20050920
  4. ANTIDEPRESSANTS () [Suspect]
     Indication: ACCIDENTAL EXPOSURE
     Dosage: SEE IMAGE, ORAL
     Route: 048
     Dates: start: 20050920
  5. BETA BLOCKING AGENTS () [Suspect]
     Indication: ACCIDENTAL EXPOSURE
     Dosage: SEE IMAGE, ORAL
     Route: 048
     Dates: start: 20050920
  6. ACE INHIBITOR (NOS) [Suspect]
     Indication: ACCIDENTAL EXPOSURE
     Dosage: SEE IMAGE, ORAL
     Route: 048
     Dates: start: 20050920
  7. ALLOPURINOL [Suspect]
     Indication: ACCIDENTAL EXPOSURE
     Dosage: SEE IMAGE, ORAL
     Route: 048
     Dates: start: 20050920
  8. SERUMLIPIDREDUCING AGENTS () [Suspect]
     Indication: ACCIDENTAL EXPOSURE
     Dosage: SEE IMAGE, ORAL
     Route: 048
     Dates: start: 20050920
  9. FUROSEMIDE [Suspect]
     Indication: ACCIDENTAL EXPOSURE
     Dosage: SEE IMAGE, ORAL
     Route: 048
     Dates: start: 20050920
  10. TERBUTALINE SULFATE [Suspect]
     Indication: ACCIDENTAL EXPOSURE
     Dosage: SEE IMAGE, ORAL
     Route: 048
     Dates: start: 20050920
  11. GASTROINTESTINAL PREPARATION () [Suspect]
     Indication: ACCIDENTAL EXPOSURE
     Dosage: SEE IMAGE, ORAL
     Route: 048
     Dates: start: 20050920

REACTIONS (3)
  - ACCIDENTAL DRUG INTAKE BY CHILD [None]
  - RESPIRATORY DEPRESSION [None]
  - SOMNOLENCE [None]
